FAERS Safety Report 24243921 (Version 1)
Quarter: 2024Q3

REPORT INFORMATION
  Report Type: Spontaneous
  Country: US (occurrence: None)
  Receive Date: 20240822
  Receipt Date: 20240822
  Transmission Date: 20241016
  Serious: No
  Sender: Public
  Company Number: None

PATIENT
  Age: 46 Year

DRUGS (1)
  1. TOLBUTAMIDE [Suspect]
     Active Substance: TOLBUTAMIDE

REACTIONS (5)
  - Oedema peripheral [None]
  - Dyspnoea [None]
  - Fatigue [None]
  - Product dispensing error [None]
  - Incorrect dose administered [None]
